FAERS Safety Report 5812575-6 (Version None)
Quarter: 2008Q3

REPORT INFORMATION
  Report Type: 
  Country: None (occurrence: None)
  Receive Date: 20080717
  Receipt Date: 20080711
  Transmission Date: 20090109
  Serious: Yes (Disabling)
  Sender: FDA-Public Use
  Company Number: US-KINGPHARMUSA00001-K200800814

PATIENT

DRUGS (3)
  1. ALTACE [Suspect]
     Indication: HYPERTENSION
     Dosage: 1.25 MG, QD
     Route: 048
     Dates: start: 20071221, end: 20080414
  2. AMLODIPINE [Concomitant]
     Dosage: 5 MG, UNK
     Route: 048
  3. CLOPIDOGREL [Concomitant]
     Dosage: 75 MG, UNK
     Route: 048

REACTIONS (3)
  - ARTHRALGIA [None]
  - FATIGUE [None]
  - LETHARGY [None]
